FAERS Safety Report 20374081 (Version 3)
Quarter: 2022Q2

REPORT INFORMATION
  Report Type: Report from Study
  Country: MX (occurrence: MX)
  Receive Date: 20220125
  Receipt Date: 20220407
  Transmission Date: 20220721
  Serious: Yes (Other)
  Sender: FDA-Public Use
  Company Number: MX-NOVARTISPH-NVSC2022MX014073

PATIENT
  Age: 4 Year
  Sex: Male
  Weight: 37 kg

DRUGS (6)
  1. MYFORTIC [Suspect]
     Active Substance: MYCOPHENOLATE SODIUM
     Indication: Liver transplant rejection
     Dosage: 0.5 DOSAGE FORM, BID
     Route: 048
     Dates: start: 201502
  2. MYFORTIC [Suspect]
     Active Substance: MYCOPHENOLATE SODIUM
     Dosage: 2 DOSAGE FORM, BID (180 MG) (EVERY 12 HOURS DAILY)
     Route: 048
     Dates: start: 201502
  3. MYFORTIC [Suspect]
     Active Substance: MYCOPHENOLATE SODIUM
     Dosage: 1 DOSAGE FORM, BID (360 MG)
     Route: 048
  4. PROGRAF [Concomitant]
     Active Substance: TACROLIMUS
     Indication: Liver transplant
     Dosage: 2 DOSAGE FORM, BID(1 MG)(IN THE MORNING AND AT NIGHT)
     Route: 048
     Dates: start: 2013
  5. AMLODIPINE [Concomitant]
     Active Substance: AMLODIPINE BESYLATE
     Indication: Renal disorder
     Dosage: 1 DOSAGE FORM (5 MG), QD
     Route: 048
     Dates: start: 2013
  6. PREDNISONE [Concomitant]
     Active Substance: PREDNISONE
     Indication: Hepatitis
     Dosage: 2 DOSAGE FORM, QD (5 MG)
     Route: 048
     Dates: start: 2013

REACTIONS (9)
  - Nephrolithiasis [Not Recovered/Not Resolved]
  - Blood uric acid increased [Not Recovered/Not Resolved]
  - Eating disorder [Not Recovered/Not Resolved]
  - Blood potassium increased [Not Recovered/Not Resolved]
  - Renal cyst [Not Recovered/Not Resolved]
  - Blood creatinine increased [Not Recovered/Not Resolved]
  - Blood urea increased [Not Recovered/Not Resolved]
  - Wrong technique in product usage process [Not Recovered/Not Resolved]
  - Off label use [Not Recovered/Not Resolved]

NARRATIVE: CASE EVENT DATE: 20150201
